FAERS Safety Report 24310254 (Version 1)
Quarter: 2024Q3

REPORT INFORMATION
  Report Type: Report from Study
  Country: US (occurrence: US)
  Receive Date: 20240912
  Receipt Date: 20240912
  Transmission Date: 20241017
  Serious: Yes (Other)
  Sender: ABBVIE
  Company Number: US-ABBVIE-5855267

PATIENT
  Sex: Female

DRUGS (4)
  1. HUMIRA [Suspect]
     Active Substance: ADALIMUMAB
     Indication: Ankylosing spondylitis
     Dosage: DISCONTINUED IN 2024
     Route: 058
     Dates: start: 20240709
  2. HUMIRA [Suspect]
     Active Substance: ADALIMUMAB
     Dosage: RESTARTED IN 2024
     Route: 058
  3. HUMIRA [Suspect]
     Active Substance: ADALIMUMAB
     Dosage: RESTARTED IN 2024
     Route: 058
     Dates: end: 202408
  4. HYDROXYCHLOROQUINE [Concomitant]
     Active Substance: HYDROXYCHLOROQUINE
     Indication: Product used for unknown indication
     Dates: end: 20240816

REACTIONS (33)
  - Cartilage injury [Unknown]
  - Nausea [Recovered/Resolved]
  - Palpitations [Recovering/Resolving]
  - Body temperature increased [Recovering/Resolving]
  - Poor quality sleep [Recovering/Resolving]
  - Hangover [Recovering/Resolving]
  - Lung disorder [Recovering/Resolving]
  - Feeling hot [Recovered/Resolved]
  - Pneumonitis [Recovering/Resolving]
  - Pulmonary hypertension [Recovering/Resolving]
  - Chest discomfort [Recovering/Resolving]
  - Pulmonary fibrosis [Unknown]
  - Pyrexia [Recovered/Resolved]
  - Joint swelling [Unknown]
  - Ankylosing spondylitis [Recovering/Resolving]
  - Cervical spinal stenosis [Unknown]
  - Swelling [Recovered/Resolved]
  - Lethargy [Recovered/Resolved]
  - Blood test abnormal [Unknown]
  - Fatigue [Recovered/Resolved]
  - Rales [Recovered/Resolved]
  - Nausea [Recovered/Resolved]
  - Musculoskeletal chest pain [Recovered/Resolved]
  - Spondylitis [Recovered/Resolved]
  - Hypoaesthesia oral [Unknown]
  - Lumbar radiculopathy [Unknown]
  - Swelling [Unknown]
  - Micturition disorder [Unknown]
  - Hyperhidrosis [Recovered/Resolved]
  - Chills [Recovered/Resolved]
  - Cough [Recovered/Resolved]
  - Headache [Recovered/Resolved]
  - Illness [Unknown]

NARRATIVE: CASE EVENT DATE: 20240101
